FAERS Safety Report 4466975-X (Version None)
Quarter: 2004Q3

REPORT INFORMATION
  Report Type: 
  Country: None (occurrence: None)
  Receive Date: 20040930
  Receipt Date: 20040916
  Transmission Date: 20050211
  Serious: Yes (Other)
  Sender: FDA-Public Use
  Company Number: 2004-BP-04277BP

PATIENT
  Sex: Male
  Weight: 95.26 kg

DRUGS (4)
  1. MIRAPEX [Suspect]
     Indication: PARKINSON'S DISEASE
     Dosage: SEE IMAGE
     Route: 048
     Dates: start: 19980205, end: 19981204
  2. MIRAPEX [Suspect]
     Indication: PARKINSON'S DISEASE
     Dosage: SEE IMAGE
     Route: 048
     Dates: start: 19981205
  3. SELEGELINE HYDROCHLORIDE [Concomitant]
  4. PAXIL [Concomitant]

REACTIONS (1)
  - PATHOLOGICAL GAMBLING [None]
